FAERS Safety Report 4666202-4 (Version None)
Quarter: 2005Q2

REPORT INFORMATION
  Report Type: 
  Country: None (occurrence: None)
  Receive Date: 20050518
  Receipt Date: 20050505
  Transmission Date: 20051028
  Serious: Yes (Disabling, Other)
  Sender: FDA-Public Use
  Company Number: 8010476

PATIENT
  Age: 57 Year
  Sex: Female

DRUGS (6)
  1. KEPPRA [Suspect]
     Indication: EPILEPSY
     Dosage: PO
     Route: 048
     Dates: start: 20050101
  2. LAMICTAL [Concomitant]
  3. CIMETIDINE [Concomitant]
  4. AMITRIPTYLINE [Concomitant]
  5. PROPRANOLOL [Concomitant]
  6. CO-PROXAMOL [Concomitant]

REACTIONS (1)
  - VISUAL FIELD DEFECT [None]
